FAERS Safety Report 23778534 (Version 1)
Quarter: 2024Q2

REPORT INFORMATION
  Report Type: Report from Study
  Country: IE (occurrence: IE)
  Receive Date: 20240424
  Receipt Date: 20240424
  Transmission Date: 20240715
  Serious: Yes (Hospitalization, Other)
  Sender: FDA-Public Use
  Company Number: IE-TAKEDA-2023TUS112297

PATIENT
  Age: 39 Year
  Sex: Female

DRUGS (1)
  1. VEDOLIZUMAB [Suspect]
     Active Substance: VEDOLIZUMAB
     Indication: Crohn^s disease
     Dosage: 108 MILLIGRAM
     Route: 058
     Dates: start: 20231013

REACTIONS (4)
  - Intestinal obstruction [Unknown]
  - Weight decreased [Unknown]
  - Decreased appetite [Unknown]
  - Injection site pain [Unknown]

NARRATIVE: CASE EVENT DATE: 20231013
